FAERS Safety Report 5032554-9 (Version None)
Quarter: 2006Q2

REPORT INFORMATION
  Report Type: 
  Country: None (occurrence: None)
  Receive Date: 20060622
  Receipt Date: 20060613
  Transmission Date: 20061013
  Serious: Yes (Hospitalization)
  Sender: FDA-Public Use
  Company Number: PHBS2006JP08957

PATIENT
  Age: 61 Year
  Sex: Female

DRUGS (1)
  1. LAMISIL [Suspect]
     Dosage: 125 MG/D
     Route: 048
     Dates: start: 20060501, end: 20060607

REACTIONS (5)
  - HAEMATURIA [None]
  - HEPATIC FUNCTION ABNORMAL [None]
  - PROTEINURIA [None]
  - PYREXIA [None]
  - RASH [None]
